FAERS Safety Report 20539694 (Version 1)
Quarter: 2022Q1

REPORT INFORMATION
  Report Type: Spontaneous
  Country: CN (occurrence: CN)
  Receive Date: 20220302
  Receipt Date: 20220302
  Transmission Date: 20220424
  Serious: Yes (Other)
  Sender: FDA-Public Use
  Company Number: CN-BAYER-2021A238404

PATIENT
  Age: 78 Year
  Sex: Male

DRUGS (1)
  1. XARELTO [Suspect]
     Active Substance: RIVAROXABAN
     Indication: Atrial fibrillation
     Dosage: 1 DF, QD
     Route: 048
     Dates: start: 20210601, end: 20211007

REACTIONS (10)
  - Haemorrhagic erosive gastritis [Recovering/Resolving]
  - Nephrolithiasis [Unknown]
  - Melaena [Recovering/Resolving]
  - Blood loss anaemia [Recovering/Resolving]
  - Abnormal faeces [Recovering/Resolving]
  - Asthenia [Recovering/Resolving]
  - Tachypnoea [Recovering/Resolving]
  - Chronic gastritis [Unknown]
  - Renal cyst [Unknown]
  - Aortic arteriosclerosis [Unknown]

NARRATIVE: CASE EVENT DATE: 20211007
